FAERS Safety Report 9716243 (Version 3)
Quarter: 2013Q4

REPORT INFORMATION
  Report Type: Spontaneous
  Country: JP (occurrence: JP)
  Receive Date: 20131127
  Receipt Date: 20131205
  Transmission Date: 20140711
  Serious: Yes (Other)
  Sender: FDA-Public Use
  Company Number: JP-ASTRAZENECA-2013SE79029

PATIENT
  Age: 78 Year
  Sex: Male
  Weight: 36 kg

DRUGS (7)
  1. ACCOLATE [Suspect]
     Indication: ASTHMA
     Route: 048
     Dates: start: 20130628
  2. ARICEPT D [Suspect]
     Route: 048
  3. MUCOSAL-L [Concomitant]
     Route: 048
     Dates: start: 2009
  4. WARFARIN [Concomitant]
     Route: 048
     Dates: start: 201211, end: 20131011
  5. WARFARIN [Concomitant]
     Route: 048
     Dates: start: 20131015
  6. LANSOPRAZOLE-OD [Concomitant]
     Route: 048
     Dates: start: 2009
  7. OTHER CONCOMITANT DRUGS [Concomitant]

REACTIONS (1)
  - International normalised ratio increased [Recovered/Resolved]
